FAERS Safety Report 16257123 (Version 1)
Quarter: 2019Q2

REPORT INFORMATION
  Report Type: Spontaneous
  Country: CN (occurrence: CN)
  Receive Date: 20190430
  Receipt Date: 20190430
  Transmission Date: 20190711
  Serious: Yes (Other)
  Sender: FDA-Public Use
  Company Number: CN-ROCHE-2307235

PATIENT
  Age: 59 Year
  Sex: Female

DRUGS (22)
  1. EPIRUBICIN [Concomitant]
     Active Substance: EPIRUBICIN
     Indication: NEOPLASM MALIGNANT
     Route: 065
     Dates: start: 201402, end: 201405
  2. NIFEDIPINE. [Concomitant]
     Active Substance: NIFEDIPINE
  3. CAPECITABINE. [Suspect]
     Active Substance: CAPECITABINE
     Indication: NEOPLASM MALIGNANT
     Route: 048
     Dates: start: 20160806, end: 2016
  4. LETROZOLE. [Concomitant]
     Active Substance: LETROZOLE
     Dosage: ENDOCRINE THERAPY
     Route: 048
     Dates: start: 20140801
  5. VINORELBINE [Concomitant]
     Active Substance: VINORELBINE\VINORELBINE TARTRATE
     Route: 065
     Dates: start: 20160101
  6. GEMCITABINE [Concomitant]
     Active Substance: GEMCITABINE\GEMCITABINE HYDROCHLORIDE
     Indication: NEOPLASM MALIGNANT
     Route: 065
     Dates: start: 20161110
  7. PIRARUBICIN [Concomitant]
     Active Substance: PIRARUBICIN
     Indication: NEOPLASM MALIGNANT
     Dosage: INVASIVE CARCINOMA OF RIGHT BREAST MASS
     Route: 065
     Dates: start: 20161221
  8. DOCETAXEL. [Concomitant]
     Active Substance: DOCETAXEL
     Indication: NEOPLASM MALIGNANT
     Route: 065
     Dates: start: 201402, end: 2014
  9. VINORELBINE [Concomitant]
     Active Substance: VINORELBINE\VINORELBINE TARTRATE
     Indication: NEOPLASM MALIGNANT
     Route: 065
     Dates: start: 20160806
  10. LOBAPLATIN [Concomitant]
     Active Substance: LOBAPLATIN
     Indication: NEOPLASM MALIGNANT
     Route: 065
     Dates: start: 20161221
  11. LIPIODOL [Concomitant]
     Active Substance: ETHIODIZED OIL
     Indication: NEOPLASM MALIGNANT
     Route: 065
     Dates: start: 20161221
  12. CYCLOPHOSPHAMIDE. [Concomitant]
     Active Substance: CYCLOPHOSPHAMIDE
     Indication: NEOPLASM MALIGNANT
     Route: 065
     Dates: start: 201402, end: 2014
  13. CISPLATIN. [Concomitant]
     Active Substance: CISPLATIN
     Indication: NEOPLASM MALIGNANT
     Route: 065
     Dates: start: 20161110
  14. CISPLATIN. [Concomitant]
     Active Substance: CISPLATIN
     Route: 065
     Dates: start: 201702, end: 201708
  15. GEMCITABINE [Concomitant]
     Active Substance: GEMCITABINE\GEMCITABINE HYDROCHLORIDE
     Route: 065
     Dates: start: 201702, end: 201708
  16. TRASTUZUMAB. [Suspect]
     Active Substance: TRASTUZUMAB
     Indication: NEOPLASM MALIGNANT
     Dosage: PER WEEK
     Route: 065
     Dates: start: 20170920
  17. EPIRUBICIN [Concomitant]
     Active Substance: EPIRUBICIN
     Route: 065
     Dates: start: 201406, end: 201407
  18. RALTITREXED [Concomitant]
     Active Substance: RALTITREXED
     Indication: NEOPLASM MALIGNANT
     Route: 065
     Dates: start: 20161221
  19. VINORELBINE [Concomitant]
     Active Substance: VINORELBINE\VINORELBINE TARTRATE
     Dosage: ON DAY 1 AND DAY 8
     Route: 065
  20. GEMCITABINE [Concomitant]
     Active Substance: GEMCITABINE\GEMCITABINE HYDROCHLORIDE
     Route: 065
     Dates: start: 201710, end: 201804
  21. METOPROLOL SUCCINATE. [Concomitant]
     Active Substance: METOPROLOL SUCCINATE
  22. VINORELBINE [Concomitant]
     Active Substance: VINORELBINE\VINORELBINE TARTRATE
     Route: 065

REACTIONS (2)
  - Bone marrow failure [Unknown]
  - Chest pain [Unknown]
